FAERS Safety Report 18012916 (Version 2)
Quarter: 2020Q3

REPORT INFORMATION
  Report Type: Report from Study
  Country: TW (occurrence: TW)
  Receive Date: 20200713
  Receipt Date: 20200722
  Transmission Date: 20201103
  Serious: Yes (Other)
  Sender: FDA-Public Use
  Company Number: TW-EMD SERONO-9173722

PATIENT
  Age: 18 Year
  Sex: Male
  Weight: 56 kg

DRUGS (1)
  1. SAIZEN [Suspect]
     Active Substance: SOMATROPIN
     Indication: GROWTH HORMONE DEFICIENCY
     Route: 058
     Dates: start: 20180111

REACTIONS (1)
  - Epiphyses premature fusion [Unknown]

NARRATIVE: CASE EVENT DATE: 2020
